FAERS Safety Report 14006560 (Version 1)
Quarter: 2017Q3

REPORT INFORMATION
  Report Type: Spontaneous
  Country: JP (occurrence: JP)
  Receive Date: 20170925
  Receipt Date: 20170925
  Transmission Date: 20171128
  Serious: Yes (Other)
  Sender: FDA-Public Use
  Company Number: JP-CIPLA LTD.-2017JP17476

PATIENT

DRUGS (1)
  1. ALENDRONATE [Suspect]
     Active Substance: ALENDRONATE SODIUM
     Indication: OSTEOPOROSIS
     Dosage: 35 MG, WEEKLY
     Route: 048

REACTIONS (3)
  - Laryngeal ulceration [Recovered/Resolved with Sequelae]
  - Wrong technique in product usage process [Recovered/Resolved with Sequelae]
  - Pharyngeal ulceration [Recovered/Resolved with Sequelae]
